FAERS Safety Report 4313965-3 (Version None)
Quarter: 2004Q1

REPORT INFORMATION
  Report Type: 
  Country: None (occurrence: None)
  Receive Date: 20040305
  Receipt Date: 20040224
  Transmission Date: 20041129
  Serious: Yes (Other)
  Sender: FDA-Public Use
  Company Number: HQWYE286024FEB04

PATIENT
  Age: 80 Year
  Sex: Female

DRUGS (5)
  1. CORDARONE [Suspect]
     Indication: ATRIAL FIBRILLATION
     Dosage: 200 MG 5X PER 1 WK ORAL
     Route: 048
     Dates: start: 20020901
  2. CORTISONE (CORTISONE) [Concomitant]
  3. CORTISONE (CORTISONE) [Concomitant]
  4. GLUCOPHAGE [Concomitant]
  5. COVERSYL (PERINDOPRIL) [Concomitant]

REACTIONS (4)
  - CEREBROVASCULAR ACCIDENT [None]
  - CONCUSSION [None]
  - ELECTROMYOGRAM ABNORMAL [None]
  - FALL [None]
